FAERS Safety Report 24185358 (Version 2)
Quarter: 2024Q3

REPORT INFORMATION
  Report Type: Spontaneous
  Country: US (occurrence: US)
  Receive Date: 20240807
  Receipt Date: 20240809
  Transmission Date: 20241016
  Serious: No
  Sender: SANOFI AVENTIS
  Company Number: US-SA-SAC20240801000134

PATIENT
  Age: 59 Year
  Sex: Female
  Weight: 151.9 kg

DRUGS (15)
  1. DUPIXENT [Suspect]
     Active Substance: DUPILUMAB
     Indication: Dermatitis atopic
     Dosage: 300 MG, QOW
     Route: 058
  2. VTAMA [Concomitant]
     Active Substance: TAPINAROF
     Dosage: UNK
  3. FISH OIL [Concomitant]
     Active Substance: FISH OIL
     Dosage: UNK
  4. PILOCARPINE HYDROCHLORIDE [Concomitant]
     Active Substance: PILOCARPINE HYDROCHLORIDE
     Dosage: UNK
  5. CYCLOBENZAPRINE HYDROCHLORIDE [Concomitant]
     Active Substance: CYCLOBENZAPRINE HYDROCHLORIDE
     Dosage: UNK
  6. TYLENOL ARTHRITIS PAIN [Concomitant]
     Active Substance: ACETAMINOPHEN
     Dosage: UNK
  7. VITAMIN B6 [Concomitant]
     Active Substance: PYRIDOXINE HYDROCHLORIDE
     Dosage: UNK
  8. SUNOSI [Concomitant]
     Active Substance: SOLRIAMFETOL
     Dosage: 50MG
  9. AMLODIPINE BESYLATE [Concomitant]
     Active Substance: AMLODIPINE BESYLATE
     Dosage: 150MG
  10. SYNTHROID [Concomitant]
     Active Substance: LEVOTHYROXINE SODIUM
     Dosage: 10MG
  11. DULOXETINE HYDROCHLORIDE [Concomitant]
     Active Substance: DULOXETINE HYDROCHLORIDE
  12. GABAPENTIN [Concomitant]
     Active Substance: GABAPENTIN
     Dosage: UNK
  13. BISOPROLOL FUMARATE\HYDROCHLOROTHIAZIDE [Concomitant]
     Active Substance: BISOPROLOL FUMARATE\HYDROCHLOROTHIAZIDE
     Dosage: UNK
  14. ASPIRIN [Concomitant]
     Active Substance: ASPIRIN
     Dosage: UNK
  15. VITAMIN D NOS [Concomitant]
     Active Substance: CHOLECALCIFEROL\ERGOCALCIFEROL
     Dosage: UNK

REACTIONS (7)
  - Diarrhoea [Not Recovered/Not Resolved]
  - Headache [Unknown]
  - Sleep disorder due to a general medical condition [Unknown]
  - Abdominal pain upper [Unknown]
  - Blister [Unknown]
  - Pruritus [Recovering/Resolving]
  - Skin exfoliation [Unknown]

NARRATIVE: CASE EVENT DATE: 20240722
